FAERS Safety Report 5312630-3 (Version None)
Quarter: 2007Q2

REPORT INFORMATION
  Report Type: 
  Country: None (occurrence: None)
  Receive Date: 20070430
  Receipt Date: 20070109
  Transmission Date: 20071010
  Serious: No
  Sender: FDA-Public Use
  Company Number: 2007UW00556

PATIENT
  Age: 57 Year
  Sex: Female
  Weight: 68 kg

DRUGS (4)
  1. NEXIUM [Suspect]
     Indication: ULCER
     Route: 048
     Dates: start: 20000101, end: 20040101
  2. PREVACID [Suspect]
     Dates: start: 20000101, end: 20040101
  3. ACIPHEX [Suspect]
     Dates: start: 20000101, end: 20040101
  4. ZANTAC [Concomitant]

REACTIONS (4)
  - DIZZINESS [None]
  - FATIGUE [None]
  - GASTRITIS [None]
  - ULCER [None]
